FAERS Safety Report 21964212 (Version 1)
Quarter: 2023Q1

REPORT INFORMATION
  Report Type: Spontaneous
  Country: US (occurrence: US)
  Receive Date: 20230207
  Receipt Date: 20230207
  Transmission Date: 20230417
  Serious: No
  Sender: FDA-Public Use
  Company Number: US-ELITE LABORATORIES INC.-2022ELT00094

PATIENT

DRUGS (2)
  1. PHENTERMINE [Suspect]
     Active Substance: PHENTERMINE
  2. XELJANZ [Concomitant]
     Active Substance: TOFACITINIB CITRATE

REACTIONS (1)
  - Drug hypersensitivity [Unknown]
